FAERS Safety Report 6807074-9 (Version None)
Quarter: 2010Q2

REPORT INFORMATION
  Report Type: 
  Country: None (occurrence: None)
  Receive Date: 20100629
  Receipt Date: 20080621
  Transmission Date: 20101027
  Serious: Yes (Other)
  Sender: FDA-Public Use
  Company Number: US-PFIZER INC-2008052440

PATIENT
  Sex: Male
  Weight: 72.727 kg

DRUGS (1)
  1. VIAGRA [Suspect]
     Indication: ERECTILE DYSFUNCTION

REACTIONS (5)
  - DEAFNESS [None]
  - HEADACHE [None]
  - NASAL CONGESTION [None]
  - SINUS DISORDER [None]
  - TINNITUS [None]
